FAERS Safety Report 7940600-5 (Version None)
Quarter: 2011Q4

REPORT INFORMATION
  Report Type: 
  Country: None (occurrence: None)
  Receive Date: 20111108
  Receipt Date: 20101208
  Transmission Date: 20120403
  Serious: Yes (Other)
  Sender: FDA-Public Use
  Company Number: PHEH2009US07547

PATIENT
  Sex: Female

DRUGS (3)
  1. ZOMETA [Suspect]
  2. CHEMOTHERAPEUTICS NOS (NO INGREDIENTS/SUBSTANCES) [Concomitant]
  3. FOSAMAX [Suspect]

REACTIONS (16)
  - PAIN [None]
  - GENERAL PHYSICAL HEALTH DETERIORATION [None]
  - TOOTH EXTRACTION [None]
  - PERIODONTITIS [None]
  - DEBRIDEMENT [None]
  - IMPAIRED HEALING [None]
  - DYSGEUSIA [None]
  - GINGIVAL INFECTION [None]
  - SEQUESTRECTOMY [None]
  - DEVICE BREAKAGE [None]
  - GINGIVAL PAIN [None]
  - ERYTHEMA [None]
  - NECROSIS [None]
  - OSTEONECROSIS OF JAW [None]
  - ANXIETY [None]
  - DECREASED INTEREST [None]
